FAERS Safety Report 21002706 (Version 1)
Quarter: 2022Q2

REPORT INFORMATION
  Report Type: Spontaneous
  Country: US (occurrence: US)
  Receive Date: 20220624
  Receipt Date: 20220624
  Transmission Date: 20220720
  Serious: No
  Sender: FDA-Public Use
  Company Number: US-BioHaven Pharmaceuticals-2022BHV001456

PATIENT
  Age: 64 Year
  Sex: Male
  Weight: 107.14 kg

DRUGS (2)
  1. NURTEC ODT [Suspect]
     Active Substance: RIMEGEPANT SULFATE
     Indication: Migraine
     Dosage: 1 TABLET
     Route: 065
  2. SUMATRIPTAN [Concomitant]
     Active Substance: SUMATRIPTAN
     Indication: Migraine
     Dosage: IT WAS WORKING PRETTY GOOD BUT AS SOON AS IT WEARS OFF, THE MIGRAINE STARTS TO COME BACK
     Route: 065

REACTIONS (1)
  - Drug ineffective [Not Recovered/Not Resolved]
